FAERS Safety Report 6263195-3 (Version None)
Quarter: 2009Q3

REPORT INFORMATION
  Report Type: 
  Country: None (occurrence: None)
  Receive Date: 20090710
  Receipt Date: 20090428
  Transmission Date: 20100115
  Serious: No
  Sender: FDA-Public Use
  Company Number: US-BAYER-200919386NA

PATIENT
  Sex: Male

DRUGS (1)
  1. BETASERON [Suspect]
     Indication: RELAPSING-REMITTING MULTIPLE SCLEROSIS

REACTIONS (4)
  - DIZZINESS [None]
  - VERTIGO [None]
  - VOMITING [None]
  - WEIGHT DECREASED [None]
